FAERS Safety Report 14494313 (Version 3)
Quarter: 2018Q1

REPORT INFORMATION
  Report Type: Spontaneous
  Country: US (occurrence: US)
  Receive Date: 20180206
  Receipt Date: 20180325
  Transmission Date: 20180509
  Serious: Yes (Hospitalization, Other)
  Sender: FDA-Public Use
  Company Number: US-TEVA-805288USA

PATIENT
  Sex: Female

DRUGS (4)
  1. NEXIUM [Concomitant]
     Active Substance: ESOMEPRAZOLE MAGNESIUM
  2. ACITRETIN. [Suspect]
     Active Substance: ACITRETIN
     Indication: TRANSIENT ACANTHOLYTIC DERMATOSIS
     Dates: start: 201508
  3. ACITRETIN. [Suspect]
     Active Substance: ACITRETIN
     Dates: start: 201508
  4. OXYCONTIN [Concomitant]
     Active Substance: OXYCODONE HYDROCHLORIDE

REACTIONS (11)
  - Rectal cancer [Recovered/Resolved with Sequelae]
  - Oral mucosal blistering [Recovered/Resolved]
  - Haemorrhage [Unknown]
  - Pruritus [Unknown]
  - Colon cancer [Unknown]
  - Cancer surgery [Recovered/Resolved with Sequelae]
  - Chemotherapy [Unknown]
  - Colostomy [Unknown]
  - Radiotherapy [Unknown]
  - Oesophageal mucosal blister [Recovered/Resolved]
  - Asthenia [Unknown]

NARRATIVE: CASE EVENT DATE: 201703
